FAERS Safety Report 4436677-4 (Version None)
Quarter: 2004Q3

REPORT INFORMATION
  Report Type: 
  Country: None (occurrence: None)
  Receive Date: 20040728
  Receipt Date: 20031107
  Transmission Date: 20050211
  Serious: Yes (Other)
  Sender: FDA-Public Use
  Company Number: 203173

PATIENT
  Age: 38 Year
  Sex: Male

DRUGS (8)
  1. RITUXAN [Suspect]
     Indication: NON-HODGKIN'S LYMPHOMA
     Dosage: 750 MG, Q3W, INTRAVENOUS
     Route: 042
     Dates: start: 20030923
  2. CYCLOPHOSPHAMIDE [Concomitant]
  3. DOXORUBICIN HYDROCHLORIDE [Concomitant]
  4. VINCRISTINE [Concomitant]
  5. PREDNISONE [Concomitant]
  6. BENADRYL [Concomitant]
  7. TYLENOL [Concomitant]
  8. SOLU-MEDROL [Concomitant]

REACTIONS (1)
  - BRONCHOSPASM [None]
